FAERS Safety Report 7454100-2 (Version None)
Quarter: 2011Q2

REPORT INFORMATION
  Report Type: 
  Country: None (occurrence: None)
  Receive Date: 20110503
  Receipt Date: 20110419
  Transmission Date: 20111010
  Serious: Yes (Hospitalization)
  Sender: FDA-Public Use
  Company Number: US-BIOGENIDEC-2010BI030908

PATIENT
  Sex: Female

DRUGS (3)
  1. TYSABRI [Suspect]
     Route: 042
     Dates: start: 20090331, end: 20101001
  2. TYSABRI [Suspect]
     Indication: MULTIPLE SCLEROSIS
     Route: 042
     Dates: start: 20070625, end: 20081008
  3. TYSABRI [Suspect]
     Route: 042
     Dates: start: 20110328

REACTIONS (13)
  - ALOPECIA [None]
  - DIARRHOEA [None]
  - ASTHENIA [None]
  - OBSTRUCTIVE UROPATHY [None]
  - ABDOMINAL ABSCESS [None]
  - MULTIPLE SCLEROSIS [None]
  - HAIR TEXTURE ABNORMAL [None]
  - DEPRESSED MOOD [None]
  - MOBILITY DECREASED [None]
  - SENSATION OF HEAVINESS [None]
  - BACTERIAL TEST POSITIVE [None]
  - COLONIC POLYP [None]
  - MUSCULAR WEAKNESS [None]
